FAERS Safety Report 4879128-8 (Version None)
Quarter: 2006Q1

REPORT INFORMATION
  Report Type: 
  Country: None (occurrence: None)
  Receive Date: 20060112
  Receipt Date: 20060104
  Transmission Date: 20060701
  Serious: Yes (Hospitalization, Other)
  Sender: FDA-Public Use
  Company Number: PHRM2006FR00453

PATIENT
  Age: 35 Year
  Sex: Male

DRUGS (5)
  1. ASPEGIC 1000 [Suspect]
     Dosage: 75 MG/DAY
     Route: 048
     Dates: start: 20050315
  2. RENITEC [Suspect]
     Dosage: 20 MG/DAY
     Route: 048
     Dates: start: 20050315
  3. LASILIX [Suspect]
     Dosage: 40 MG, BID
     Route: 048
     Dates: start: 20050315
  4. CELLCEPT [Suspect]
     Dosage: 2 G/DAY
     Route: 048
     Dates: start: 20050315
  5. ESIDRIX [Suspect]
     Dosage: 25 MG, QD
     Route: 048
     Dates: start: 20050315

REACTIONS (5)
  - ERYTHEMA MULTIFORME [None]
  - GLOMERULONEPHROPATHY [None]
  - PRURITUS [None]
  - PURPURA [None]
  - RASH [None]
